FAERS Safety Report 8522108-1 (Version None)
Quarter: 2012Q3

REPORT INFORMATION
  Report Type: 
  Country: None (occurrence: None)
  Receive Date: 20120719
  Receipt Date: 20120710
  Transmission Date: 20120928
  Serious: Yes (Hospitalization)
  Sender: FDA-Public Use
  Company Number: FR-JNJFOC-20120506501

PATIENT
  Sex: Female

DRUGS (13)
  1. REMICADE [Suspect]
     Indication: RHEUMATOID ARTHRITIS
     Route: 042
     Dates: start: 20020101, end: 20100601
  2. ENBREL [Suspect]
     Indication: RHEUMATOID ARTHRITIS
     Route: 058
     Dates: start: 20100601, end: 20101001
  3. PREDNISONE [Concomitant]
  4. ZOLPIDEM [Concomitant]
     Route: 065
  5. PERINDOPRIL ERBUMINE [Concomitant]
     Route: 065
  6. PANTOPRAZOLE [Concomitant]
  7. LEVOTHYROXINE SODIUM [Concomitant]
     Route: 065
  8. ORENCIA [Suspect]
     Indication: RHEUMATOID ARTHRITIS
     Route: 050
     Dates: start: 20101025, end: 20120323
  9. INDAPAMIDE [Concomitant]
     Route: 065
  10. PREDNISONE TAB [Concomitant]
     Route: 065
  11. FLECAINIDE ACETATE [Concomitant]
     Route: 065
  12. METHOTREXATE SODIUM [Suspect]
     Indication: RHEUMATOID ARTHRITIS
     Route: 048
     Dates: start: 19980101, end: 20120401
  13. ORENCIA [Suspect]
     Route: 050
     Dates: start: 20101011

REACTIONS (6)
  - GOITRE [None]
  - KNEE ARTHROPLASTY [None]
  - CARDIAC FAILURE [None]
  - LUNG DISORDER [None]
  - CEREBROVASCULAR ACCIDENT [None]
  - ACUTE MYELOID LEUKAEMIA [None]
